FAERS Safety Report 5892717-7 (Version None)
Quarter: 2008Q3

REPORT INFORMATION
  Report Type: 
  Country: None (occurrence: None)
  Receive Date: 20080919
  Receipt Date: 20080919
  Transmission Date: 20090109
  Serious: Yes (Hospitalization)
  Sender: FDA-Public Use
  Company Number: None

PATIENT
  Sex: Male
  Weight: 105 kg

DRUGS (8)
  1. CISPLATIN [Suspect]
     Dosage: 65 MG
  2. ERBITUX [Suspect]
     Dosage: 868 MG
  3. CAMPTOSAR [Suspect]
     Dosage: 141 MG
  4. COUMADIN [Concomitant]
  5. FLEXERIL [Concomitant]
  6. MOBIC [Concomitant]
  7. PRAVACHOL [Concomitant]
  8. TRIAMTERENE [Concomitant]

REACTIONS (1)
  - BACK PAIN [None]
